FAERS Safety Report 13069675 (Version 1)
Quarter: 2016Q4

REPORT INFORMATION
  Report Type: Spontaneous
  Country: US (occurrence: US)
  Receive Date: 20161228
  Receipt Date: 20161228
  Transmission Date: 20170207
  Serious: Yes (Hospitalization)
  Sender: FDA-Public Use
  Company Number: US-PFIZER INC-2016598161

PATIENT
  Age: 62 Year
  Sex: Male
  Weight: 88.45 kg

DRUGS (13)
  1. LYRICA [Suspect]
     Active Substance: PREGABALIN
     Indication: DIABETIC NEUROPATHY
     Dosage: 75 MG, 3X/DAY
     Route: 048
     Dates: start: 2003
  2. LANSOPRAZOLE. [Concomitant]
     Active Substance: LANSOPRAZOLE
     Indication: GASTROOESOPHAGEAL REFLUX DISEASE
     Dosage: 30 MG, DAILY
     Route: 048
     Dates: start: 2011
  3. DIGOXIN. [Concomitant]
     Active Substance: DIGOXIN
     Indication: HEART RATE ABNORMAL
     Dosage: 250 UG, DAILY
     Dates: start: 2002
  4. DIGOXIN. [Concomitant]
     Active Substance: DIGOXIN
     Indication: CARDIAC ASSISTANCE DEVICE USER
  5. SERTRALINE [Concomitant]
     Active Substance: SERTRALINE HYDROCHLORIDE
     Indication: DEPRESSION
     Dosage: 100 MG, DAILY
     Route: 048
     Dates: start: 2002
  6. METFORMIN HCL [Concomitant]
     Active Substance: METFORMIN HYDROCHLORIDE
     Indication: TYPE 2 DIABETES MELLITUS
     Dosage: 500 MG, 2X/DAY
     Route: 048
     Dates: start: 2003
  7. ISOSORBIDE NITRATE [Concomitant]
     Indication: ANGINA PECTORIS
     Dosage: 40 MG, 2X/DAY (EVERY 12 HOURS)
     Route: 048
     Dates: start: 2010
  8. ALLOPURINOL. [Concomitant]
     Active Substance: ALLOPURINOL
     Indication: GOUT
     Dosage: 100 MG, DAILY
     Route: 048
     Dates: start: 2011
  9. LISINOPRIL. [Concomitant]
     Active Substance: LISINOPRIL
     Indication: BLOOD PRESSURE ABNORMAL
     Dosage: 10 MG, DAILY
     Route: 048
     Dates: start: 2002
  10. LANTUS [Concomitant]
     Active Substance: INSULIN GLARGINE
     Indication: TYPE 2 DIABETES MELLITUS
     Dosage: 38 IU, 2X/DAY
     Dates: start: 2003
  11. FUROSEMIDE. [Concomitant]
     Active Substance: FUROSEMIDE
     Indication: CARDIOVASCULAR EVENT PROPHYLAXIS
     Dosage: 40 MG, 1X/DAY
     Route: 048
     Dates: start: 2015
  12. CARVEDILOL. [Concomitant]
     Active Substance: CARVEDILOL
     Indication: CARDIAC DISORDER
     Dosage: 6.25 MG, 2X/DAY
     Route: 048
     Dates: start: 2014
  13. WARFARIN [Concomitant]
     Active Substance: WARFARIN
     Indication: CARDIAC VALVE DISEASE
     Dosage: 4.5 MG ON 3 DAYS OF THE WEEK AND 1.5 MG ON THE OTHER DAYS
     Route: 048
     Dates: start: 2002

REACTIONS (1)
  - Oesophageal varices haemorrhage [Recovered/Resolved]

NARRATIVE: CASE EVENT DATE: 20160508
